FAERS Safety Report 21445368 (Version 2)
Quarter: 2022Q4

REPORT INFORMATION
  Report Type: Report from Study
  Country: None (occurrence: CA)
  Receive Date: 20221012
  Receipt Date: 20221220
  Transmission Date: 20230113
  Serious: Yes (Other)
  Sender: FDA-Public Use
  Company Number: CA-AKCEA THERAPEUTICS, INC.-2021IS001788

PATIENT
  Age: 78 Year
  Sex: Female

DRUGS (8)
  1. TEGSEDI [Suspect]
     Active Substance: INOTERSEN SODIUM
     Indication: Hereditary neuropathic amyloidosis
     Route: 058
     Dates: start: 20210812
  2. DEVICE [Suspect]
     Active Substance: DEVICE
  3. TYLENOL ARTHRITIS PAIN [Concomitant]
     Active Substance: ACETAMINOPHEN
     Route: 065
  4. ALDACTONE [Concomitant]
     Active Substance: SPIRONOLACTONE
     Route: 048
  5. FUROSEMIDE [Concomitant]
     Active Substance: FUROSEMIDE
     Route: 048
  6. PERINDOPRIL [Concomitant]
     Active Substance: PERINDOPRIL
     Route: 048
  7. METOPROLOL [Concomitant]
     Active Substance: METOPROLOL
     Route: 048
  8. TEGSEDI [Suspect]
     Active Substance: INOTERSEN SODIUM
     Route: 058

REACTIONS (12)
  - Glomerular filtration rate decreased [Unknown]
  - Renal impairment [Unknown]
  - Haemoglobin decreased [Recovered/Resolved]
  - Blood creatinine increased [Unknown]
  - Vitamin A decreased [Unknown]
  - Red blood cell target cells present [Recovered/Resolved]
  - Monocyte count increased [Recovered/Resolved]
  - Asthenia [Not Recovered/Not Resolved]
  - Fatigue [Not Recovered/Not Resolved]
  - Protein urine present [Unknown]
  - Pruritus [Recovered/Resolved with Sequelae]
  - Poor venous access [Unknown]

NARRATIVE: CASE EVENT DATE: 20211014
